FAERS Safety Report 21130754 (Version 1)
Quarter: 2022Q3

REPORT INFORMATION
  Report Type: Spontaneous
  Country: DE (occurrence: DE)
  Receive Date: 20220726
  Receipt Date: 20220726
  Transmission Date: 20221027
  Serious: Yes (Other)
  Sender: FDA-Public Use
  Company Number: None

PATIENT
  Age: 64 Year
  Sex: Female

DRUGS (13)
  1. FLUOXETINE [Suspect]
     Active Substance: FLUOXETINE HYDROCHLORIDE
     Indication: Product used for unknown indication
     Dates: start: 20220121, end: 20220410
  2. LITHIUM [Suspect]
     Active Substance: LITHIUM
     Indication: Product used for unknown indication
     Dates: start: 20211123, end: 20211207
  3. OLANZAPINE [Concomitant]
     Active Substance: OLANZAPINE
     Dates: start: 20211121, end: 20220119
  4. OLANZAPINE [Concomitant]
     Active Substance: OLANZAPINE
     Dates: start: 20211115, end: 20211118
  5. LITHIUM [Suspect]
     Active Substance: LITHIUM
     Indication: Product used for unknown indication
     Dates: start: 20220112, end: 20220407
  6. LITHIUM [Suspect]
     Active Substance: LITHIUM
     Indication: Product used for unknown indication
     Dates: start: 20211208, end: 20220115
  7. LITHIUM [Suspect]
     Active Substance: LITHIUM
     Indication: Product used for unknown indication
     Dates: start: 20211115, end: 20211122
  8. LITHIUM [Suspect]
     Active Substance: LITHIUM
     Indication: Product used for unknown indication
     Dates: start: 20211108, end: 20211114
  9. FLUOXETINE [Suspect]
     Active Substance: FLUOXETINE HYDROCHLORIDE
     Indication: Product used for unknown indication
     Dates: start: 20211221, end: 20220120
  10. FLUOXETINE [Suspect]
     Active Substance: FLUOXETINE HYDROCHLORIDE
     Indication: Product used for unknown indication
     Dates: start: 20220411, end: 20220525
  11. FLUOXETINE [Suspect]
     Active Substance: FLUOXETINE HYDROCHLORIDE
     Indication: Product used for unknown indication
     Dates: start: 20220426
  12. FLUOXETINE [Suspect]
     Active Substance: FLUOXETINE HYDROCHLORIDE
     Indication: Product used for unknown indication
     Dosage: 10-30MG/TAG
     Dates: start: 20210920, end: 20211102
  13. FLUOXETINE [Suspect]
     Active Substance: FLUOXETINE HYDROCHLORIDE
     Indication: Product used for unknown indication
     Dates: start: 20211103, end: 20211220

REACTIONS (10)
  - Arthralgia [Unknown]
  - Muscle twitching [Unknown]
  - Breast enlargement [Unknown]
  - Weight increased [Not Recovered/Not Resolved]
  - Fatigue [Unknown]
  - Increased appetite [Unknown]
  - Neck pain [Unknown]
  - Breast discomfort [Unknown]
  - Food craving [Unknown]
  - Breast pain [Unknown]

NARRATIVE: CASE EVENT DATE: 20211201
